FAERS Safety Report 5595499-1 (Version None)
Quarter: 2008Q1

REPORT INFORMATION
  Report Type: 
  Country: None (occurrence: None)
  Receive Date: 20080118
  Receipt Date: 20080108
  Transmission Date: 20080703
  Serious: Yes (Hospitalization)
  Sender: FDA-Public Use
  Company Number: US-JNJFOC-20080104074

PATIENT
  Age: 6 Month
  Sex: Male

DRUGS (3)
  1. IBUPROFEN [Suspect]
     Indication: ANTIPYRESIS
  2. ACETAMINOPHEN [Concomitant]
     Indication: ANTIPYRESIS
     Dosage: DAY 2 OF ILLNESS
  3. CEFTRIAXONE [Concomitant]
     Dosage: DAY 2 OF ILLNESS

REACTIONS (4)
  - CEREBRAL INFARCTION [None]
  - CONVULSION [None]
  - ENDOCARDITIS STAPHYLOCOCCAL [None]
  - PURPURA FULMINANS [None]
